FAERS Safety Report 16300207 (Version 29)
Quarter: 2024Q1

REPORT INFORMATION
  Report Type: Report from Study
  Country: US (occurrence: US)
  Receive Date: 20190510
  Receipt Date: 20240319
  Transmission Date: 20240410
  Serious: Yes (Hospitalization, Other)
  Sender: FDA-Public Use
  Company Number: US-TAKEDA-2018TUS016219

PATIENT
  Age: 61 Year
  Sex: Female

DRUGS (9)
  1. PONATINIB [Suspect]
     Active Substance: PONATINIB
     Indication: Acute lymphocytic leukaemia
     Dosage: 30 MILLIGRAM, QD
     Route: 048
     Dates: start: 20171102
  2. PONATINIB [Suspect]
     Active Substance: PONATINIB
     Indication: Acute lymphocytic leukaemia (in remission)
     Dosage: 45 MILLIGRAM
     Route: 048
  3. PONATINIB [Suspect]
     Active Substance: PONATINIB
     Dosage: 15 MILLIGRAM, BID
     Route: 048
  4. PONATINIB [Suspect]
     Active Substance: PONATINIB
     Dosage: 60 MILLIGRAM, QD
     Route: 048
  5. PONATINIB [Suspect]
     Active Substance: PONATINIB
     Dosage: 30 MILLIGRAM, QD
     Route: 048
  6. PONATINIB [Suspect]
     Active Substance: PONATINIB
     Dosage: 15 MILLIGRAM, QD
     Route: 048
  7. PONATINIB [Suspect]
     Active Substance: PONATINIB
     Dosage: 30 MILLIGRAM, QD
     Route: 048
  8. PONATINIB [Suspect]
     Active Substance: PONATINIB
     Dosage: 15 MILLIGRAM, QD
     Route: 048
  9. CLARITIN [Concomitant]
     Active Substance: LORATADINE
     Indication: Seasonal allergy
     Dosage: UNK
     Route: 065

REACTIONS (47)
  - Pancreatitis [Recovering/Resolving]
  - Nasal abscess [Recovering/Resolving]
  - Inflammatory bowel disease [Unknown]
  - Craniofacial fracture [Unknown]
  - Concussion [Unknown]
  - Rotavirus infection [Unknown]
  - Decreased immune responsiveness [Recovered/Resolved]
  - Deafness [Unknown]
  - Haemorrhage [Recovered/Resolved]
  - Haematoma [Recovered/Resolved]
  - Urinary tract infection [Unknown]
  - Vomiting [Recovering/Resolving]
  - Pneumonia [Recovered/Resolved]
  - Tooth fracture [Unknown]
  - Nausea [Recovered/Resolved]
  - Dizziness [Recovering/Resolving]
  - Myalgia [Unknown]
  - Pain in extremity [Recovered/Resolved]
  - Flank pain [Recovering/Resolving]
  - Herpes zoster [Recovered/Resolved]
  - Jaw disorder [Unknown]
  - Eating disorder [Unknown]
  - Speech disorder [Unknown]
  - Fatigue [Unknown]
  - Diarrhoea [Recovering/Resolving]
  - Illness [Unknown]
  - White blood cell count increased [Unknown]
  - Viral upper respiratory tract infection [Unknown]
  - Respiratory disorder [Unknown]
  - Head discomfort [Unknown]
  - Ear discomfort [Unknown]
  - Gastrointestinal disorder [Unknown]
  - Feeling abnormal [Unknown]
  - Viral infection [Unknown]
  - Nasopharyngitis [Unknown]
  - Muscular weakness [Unknown]
  - Weight increased [Unknown]
  - Dysphonia [Unknown]
  - Influenza like illness [Recovering/Resolving]
  - Infection [Unknown]
  - Malaise [Unknown]
  - Cough [Unknown]
  - Abdominal pain upper [Unknown]
  - Pyrexia [Unknown]
  - Influenza [Unknown]
  - Product dose omission issue [Unknown]
  - Product administration error [Unknown]

NARRATIVE: CASE EVENT DATE: 20190409
